FAERS Safety Report 7028268-6 (Version None)
Quarter: 2010Q3

REPORT INFORMATION
  Report Type: 
  Country: None (occurrence: None)
  Receive Date: 20100920
  Receipt Date: 20100512
  Transmission Date: 20110219
  Serious: Yes (Hospitalization, Other)
  Sender: FDA-Public Use
  Company Number: 2010036977

PATIENT
  Age: 64 Year
  Sex: Male
  Weight: 70 kg

DRUGS (22)
  1. DILANTIN-125 [Suspect]
     Indication: CONVULSION
     Dosage: 1 G,; 100 MG, 3X/DAY; 500 MG, 1X/DAY, ORAL; 200 MG, 2X/DAY, ORAL; 200 MG, 3X/DAY
     Route: 048
     Dates: start: 19971107, end: 19971112
  2. DILANTIN-125 [Suspect]
     Indication: CONVULSION
     Dosage: 1 G,; 100 MG, 3X/DAY; 500 MG, 1X/DAY, ORAL; 200 MG, 2X/DAY, ORAL; 200 MG, 3X/DAY
     Route: 048
     Dates: start: 19971019
  3. DILANTIN-125 [Suspect]
     Indication: CONVULSION
     Dosage: 1 G,; 100 MG, 3X/DAY; 500 MG, 1X/DAY, ORAL; 200 MG, 2X/DAY, ORAL; 200 MG, 3X/DAY
     Route: 048
     Dates: start: 19971103
  4. DILANTIN [Suspect]
     Indication: CONVULSION
     Dosage: 100 MG, 3X/DAY; 300 MG, 3X/DAY; 100 MG, 3X/DAY; ORAL
     Route: 048
     Dates: start: 19971019
  5. DILANTIN [Suspect]
     Indication: CONVULSION
     Dosage: 100 MG, 3X/DAY; 300 MG, 3X/DAY; 100 MG, 3X/DAY; ORAL
     Route: 048
     Dates: start: 19971023
  6. DILANTIN [Suspect]
     Indication: CONVULSION
     Dosage: 100 MG, 3X/DAY; 300 MG, 3X/DAY; 100 MG, 3X/DAY; ORAL
     Route: 048
     Dates: start: 19971026
  7. DILANTIN [Suspect]
     Indication: CONVULSION
     Dosage: 100 MG, 3X/DAY; 300 MG, 3X/DAY; 100 MG, 3X/DAY; ORAL
     Route: 048
     Dates: start: 19971028
  8. DILANTIN [Suspect]
     Indication: CONVULSION
     Dosage: 100 MG, 3X/DAY; 300 MG, 3X/DAY; 100 MG, 3X/DAY; ORAL
     Route: 048
     Dates: start: 19971029
  9. DILANTIN [Suspect]
     Indication: CONVULSION
     Dosage: 100 MG, 3X/DAY; 300 MG, 3X/DAY; 100 MG, 3X/DAY; ORAL
     Route: 048
     Dates: start: 19971030
  10. DILANTIN [Suspect]
     Indication: CONVULSION
     Dosage: 100 MG, 3X/DAY, ORAL
     Route: 048
     Dates: start: 19971025
  11. VASOTEC [Concomitant]
  12. ATIVAN [Concomitant]
  13. CIPROFLOXACIN [Concomitant]
  14. KEFLEX [Concomitant]
  15. DECADRON [Concomitant]
  16. SYNTHROID [Concomitant]
  17. LABETALOL HCL [Concomitant]
  18. AXID [Concomitant]
  19. NORVASC [Concomitant]
  20. LOPRESSOR [Concomitant]
  21. PEPCID [Concomitant]
  22. INSULIN (INSULIN) [Concomitant]

REACTIONS (1)
  - STEVENS-JOHNSON SYNDROME [None]
